FAERS Safety Report 16469064 (Version 1)
Quarter: 2019Q2

REPORT INFORMATION
  Report Type: Spontaneous
  Country: US (occurrence: US)
  Receive Date: 20190514
  Receipt Date: 20190514
  Transmission Date: 20190711
  Serious: Yes (Hospitalization, Disabling)
  Sender: FDA-Public Use
  Company Number: None

PATIENT
  Age: 59 Year
  Sex: Female
  Weight: 86.18 kg

DRUGS (11)
  1. NAPROXEN 500MG [Suspect]
     Active Substance: NAPROXEN
     Indication: NERVE COMPRESSION
     Dosage: ?          QUANTITY:1 DF DOSAGE FORM;?
     Route: 048
     Dates: start: 20190221, end: 20190329
  2. AMLODIPINE BESYLATE. [Concomitant]
     Active Substance: AMLODIPINE BESYLATE
  3. CYCLOBENZAPRINE 10MG [Suspect]
     Active Substance: CYCLOBENZAPRINE
  4. IBUPROFEN 600MG [Suspect]
     Active Substance: IBUPROFEN
  5. ALIVE [Concomitant]
  6. NAPROXEN 500MG [Suspect]
     Active Substance: NAPROXEN
     Indication: LIGAMENT SPRAIN
     Dosage: ?          QUANTITY:1 DF DOSAGE FORM;?
     Route: 048
     Dates: start: 20190221, end: 20190329
  7. PRAVASTATIN. [Concomitant]
     Active Substance: PRAVASTATIN
  8. NAPROXEN 500MG [Suspect]
     Active Substance: NAPROXEN
     Indication: MUSCLE STRAIN
     Dosage: ?          QUANTITY:1 DF DOSAGE FORM;?
     Route: 048
     Dates: start: 20190221, end: 20190329
  9. TRAMADOL HCL [Suspect]
     Active Substance: TRAMADOL HYDROCHLORIDE
  10. NAPROXEN 500MG [Suspect]
     Active Substance: NAPROXEN
     Indication: RADICULOPATHY
     Dosage: ?          QUANTITY:1 DF DOSAGE FORM;?
     Route: 048
     Dates: start: 20190221, end: 20190329
  11. VITAMINS [Concomitant]
     Active Substance: VITAMINS

REACTIONS (3)
  - Blood potassium decreased [None]
  - Liver injury [None]
  - Asthenia [None]

NARRATIVE: CASE EVENT DATE: 20190221
